FAERS Safety Report 4365282-3 (Version None)
Quarter: 2004Q2

REPORT INFORMATION
  Report Type: 
  Country: None (occurrence: None)
  Receive Date: 20040525
  Receipt Date: 20040127
  Transmission Date: 20050107
  Serious: No
  Sender: FDA-Public Use
  Company Number: PHEH2004US01209

PATIENT
  Age: 82 Year
  Sex: Female

DRUGS (3)
  1. ZELNORM [Suspect]
     Indication: CONSTIPATION
     Dosage: 6 MG, ONCE/SINGLE, ORAL
     Route: 048
     Dates: start: 20040126, end: 20040126
  2. FLEXERIL [Suspect]
     Indication: SEDATION
     Dosage: ONCE/SINGLE, ORAL
     Route: 048
     Dates: start: 20040126, end: 20040126
  3. DAILY VITAMINS (VITAMINS NOS) [Concomitant]

REACTIONS (9)
  - BLADDER DISCOMFORT [None]
  - CONFUSIONAL STATE [None]
  - DIZZINESS [None]
  - FLUSHING [None]
  - HEADACHE [None]
  - INSOMNIA [None]
  - MICTURITION URGENCY [None]
  - NAUSEA [None]
  - POLLAKIURIA [None]
